FAERS Safety Report 15738026 (Version 1)
Quarter: 2018Q4

REPORT INFORMATION
  Report Type: Spontaneous
  Country: US (occurrence: US)
  Receive Date: 20181219
  Receipt Date: 20181219
  Transmission Date: 20190205
  Serious: No
  Sender: FDA-Public Use
  Company Number: US-009507513-1811USA009653

PATIENT
  Sex: Female

DRUGS (2)
  1. FOLLISTIM [Suspect]
     Active Substance: FOLLITROPIN
     Dosage: UNK
  2. HUMEGON [Suspect]
     Active Substance: MENOTROPINS
     Dosage: UNK

REACTIONS (1)
  - Maternal exposure before pregnancy [Recovered/Resolved]
